FAERS Safety Report 6229726-4 (Version None)
Quarter: 2009Q2

REPORT INFORMATION
  Report Type: 
  Country: None (occurrence: None)
  Receive Date: 20090615
  Receipt Date: 20090608
  Transmission Date: 20091009
  Serious: Yes (Hospitalization)
  Sender: FDA-Public Use
  Company Number: US-MERCK-0905USA00419

PATIENT
  Age: 53 Year
  Sex: Female
  Weight: 60 kg

DRUGS (5)
  1. VYTORIN [Suspect]
     Indication: BLOOD CHOLESTEROL INCREASED
     Route: 048
     Dates: start: 20090323, end: 20090406
  2. VYTORIN [Suspect]
     Route: 048
  3. VYTORIN [Suspect]
     Indication: HYPERLIPIDAEMIA
     Route: 048
     Dates: start: 20090323, end: 20090406
  4. VYTORIN [Suspect]
     Route: 048
  5. BONIVA [Suspect]
     Indication: OSTEOPOROSIS
     Route: 048
     Dates: start: 20090402, end: 20090402

REACTIONS (3)
  - CHEST PAIN [None]
  - DRUG INTERACTION [None]
  - PALPITATIONS [None]
